FAERS Safety Report 13451414 (Version 1)
Quarter: 2017Q2

REPORT INFORMATION
  Report Type: Report from Study
  Country: US (occurrence: US)
  Receive Date: 20170418
  Receipt Date: 20170418
  Transmission Date: 20170830
  Serious: Yes (Other)
  Sender: FDA-Public Use
  Company Number: US-ACCORD-050285

PATIENT

DRUGS (2)
  1. CISPLATIN. [Suspect]
     Active Substance: CISPLATIN
     Indication: LUNG NEOPLASM MALIGNANT
     Dosage: RECEIVED 8 COURSES
  2. FLUOROURACIL. [Suspect]
     Active Substance: FLUOROURACIL
     Indication: LUNG NEOPLASM MALIGNANT
     Dosage: RECEIVED 8 COURSES

REACTIONS (3)
  - Intestinal ulcer [Unknown]
  - Off label use [Unknown]
  - Gastrointestinal injury [Unknown]
